FAERS Safety Report 5011867-0 (Version None)
Quarter: 2006Q2

REPORT INFORMATION
  Report Type: 
  Country: None (occurrence: None)
  Receive Date: 20060526
  Receipt Date: 20060214
  Transmission Date: 20061013
  Serious: Yes (Other)
  Sender: FDA-Public Use
  Company Number: US-AVENTIS-200611619US

PATIENT
  Age: 16 Year
  Sex: Male

DRUGS (16)
  1. LANTUS [Suspect]
     Indication: DIABETES MELLITUS NON-INSULIN-DEPENDENT
     Dosage: DOSE UNIT: UNITS
     Dates: start: 20040226, end: 20041101
  2. LANTUS [Suspect]
     Dosage: DOSE UNIT: UNITS
     Dates: start: 20041101, end: 20041201
  3. LANTUS [Suspect]
     Dosage: DOSE UNIT: UNITS
     Dates: start: 20041201, end: 20050707
  4. LANTUS [Suspect]
     Dosage: DOSE UNIT: UNITS
     Dates: start: 20051209, end: 20060410
  5. GLUCOPHAGE [Concomitant]
     Dates: start: 20010501
  6. GLUCOPHAGE [Concomitant]
     Dates: start: 20040226, end: 20060207
  7. DRUG USED IN DIABETES [Concomitant]
     Dates: start: 20050707
  8. DRUG USED IN DIABETES [Concomitant]
     Dates: start: 20051209
  9. NOVOLOG [Concomitant]
     Dosage: DOSE: 10+5; DOSE UNIT: UNITS
     Dates: start: 19991005
  10. NOVOLOG [Concomitant]
     Dosage: DOSE: UNK
     Dates: start: 20041201
  11. AMARYL [Concomitant]
     Dates: start: 20030721, end: 20031020
  12. AMARYL [Concomitant]
     Dates: start: 20031020, end: 20040226
  13. AMARYL [Concomitant]
     Dates: start: 20040226, end: 20060207
  14. ALTACE [Concomitant]
     Route: 048
     Dates: start: 20000513
  15. PRANDIN [Concomitant]
     Dosage: FREQUENCY: BEFORE MEALS
     Dates: start: 20010108
  16. ALL OTHER THERAPEUTIC PRODUCTS [Concomitant]
     Dosage: DOSE: UNK

REACTIONS (7)
  - ACUTE LYMPHOCYTIC LEUKAEMIA [None]
  - BLOOD GLUCOSE INCREASED [None]
  - CONTUSION [None]
  - DECREASED APPETITE [None]
  - GLYCOSYLATED HAEMOGLOBIN INCREASED [None]
  - WEIGHT DECREASED [None]
  - WEIGHT INCREASED [None]
